FAERS Safety Report 10154064 (Version 1)
Quarter: 2014Q2

REPORT INFORMATION
  Report Type: Report from Study
  Country: US (occurrence: US)
  Receive Date: 20140506
  Receipt Date: 20140506
  Transmission Date: 20141212
  Serious: Yes (Other)
  Sender: FDA-Public Use
  Company Number: US-ROCHE-1392605

PATIENT
  Age: 15 Year
  Sex: Female
  Weight: 38.59 kg

DRUGS (1)
  1. NUTROPIN AQ [Suspect]
     Indication: BODY HEIGHT BELOW NORMAL
     Route: 058

REACTIONS (5)
  - Headache [Unknown]
  - Nocturia [Unknown]
  - Injection site bruising [Unknown]
  - Platelet count decreased [Unknown]
  - Drug dose omission [Unknown]
